FAERS Safety Report 11929828 (Version 2)
Quarter: 2016Q1

REPORT INFORMATION
  Report Type: Spontaneous
  Country: US (occurrence: US)
  Receive Date: 20160120
  Receipt Date: 20160308
  Transmission Date: 20160526
  Serious: No
  Sender: FDA-Public Use
  Company Number: US-TEVA-625808USA

PATIENT
  Age: 37 Year
  Sex: Male

DRUGS (8)
  1. GABAPENTIN. [Concomitant]
     Active Substance: GABAPENTIN
  2. CLONIDINE. [Concomitant]
     Active Substance: CLONIDINE
  3. BUTRANS [Concomitant]
     Active Substance: BUPRENORPHINE
     Dosage: 10MCG
  4. BENADRYL [Concomitant]
     Active Substance: DIPHENHYDRAMINE HYDROCHLORIDE
  5. COPAXONE [Suspect]
     Active Substance: GLATIRAMER ACETATE
     Indication: MULTIPLE SCLEROSIS
     Route: 058
     Dates: start: 20141023
  6. METAXALONE. [Concomitant]
     Active Substance: METAXALONE
  7. VITAMIN D [Concomitant]
     Active Substance: CHOLECALCIFEROL
  8. RIZATRIPTAN. [Concomitant]
     Active Substance: RIZATRIPTAN

REACTIONS (1)
  - Spinal pain [Recovering/Resolving]

NARRATIVE: CASE EVENT DATE: 20150920
